FAERS Safety Report 9477999 (Version 1)
Quarter: 2013Q3

REPORT INFORMATION
  Report Type: Spontaneous
  Country: US (occurrence: None)
  Receive Date: 20130822
  Receipt Date: 20130822
  Transmission Date: 20140515
  Serious: Yes (Hospitalization)
  Sender: FDA-Public Use
  Company Number: 201308015

PATIENT
  Age: 68 Year
  Sex: Male

DRUGS (5)
  1. XIAFLEX [Suspect]
     Indication: DUPUYTREN^S CONTRACTURE
     Dates: start: 20130708, end: 20130708
  2. FLOMAX (MORINFLUMATE (MORNIFLUMATE) [Concomitant]
  3. HCTZ (HYDROCHLOROTHIAZIDE) (HYDROCHLOROTHIAZIDE) [Concomitant]
  4. ASPIRIN (ACETYLSALICYLIC ACID) (ACETYLSALICYLIC ACID) [Concomitant]
  5. LISINOPRIL (LISINOPRIL) (LISINOPRIL) [Concomitant]

REACTIONS (1)
  - Cerebrovascular accident [None]
